FAERS Safety Report 23288293 (Version 2)
Quarter: 2023Q4

REPORT INFORMATION
  Report Type: Other
  Country: GB (occurrence: GB)
  Receive Date: 20231212
  Receipt Date: 20231228
  Transmission Date: 20240109
  Serious: Yes (Hospitalization, Other)
  Sender: FDA-Public Use
  Company Number: None

PATIENT

DRUGS (3)
  1. ATOMOXETINE [Suspect]
     Active Substance: ATOMOXETINE
     Indication: Attention deficit hyperactivity disorder
     Dosage: UNK
     Route: 065
     Dates: start: 2020
  2. ATOMOXETINE [Suspect]
     Active Substance: ATOMOXETINE
     Indication: Autism spectrum disorder
     Dosage: 50 MILLIGRAM, OD
     Route: 065
  3. MELATONIN [Concomitant]
     Active Substance: MELATONIN
     Indication: Poor quality sleep
     Dosage: UNK
     Route: 065

REACTIONS (1)
  - Tonic convulsion [Unknown]

NARRATIVE: CASE EVENT DATE: 20231127
